FAERS Safety Report 5492179-8 (Version None)
Quarter: 2007Q4

REPORT INFORMATION
  Report Type: 
  Country: None (occurrence: None)
  Receive Date: 20071022
  Receipt Date: 20071011
  Transmission Date: 20080405
  Serious: Yes (Other)
  Sender: FDA-Public Use
  Company Number: AR-ROCHE-524808

PATIENT
  Age: 33 Year
  Sex: Male

DRUGS (2)
  1. BONIVA [Suspect]
     Indication: OSTEOPOROSIS
     Route: 048
     Dates: end: 20071001
  2. CALCIUM [Concomitant]
     Indication: OSTEOPOROSIS

REACTIONS (1)
  - ULCERATIVE KERATITIS [None]
